FAERS Safety Report 12920575 (Version 2)
Quarter: 2017Q3

REPORT INFORMATION
  Report Type: Report from Study
  Country: JP (occurrence: JP)
  Receive Date: 20161108
  Receipt Date: 20170914
  Transmission Date: 20171127
  Serious: Yes (Hospitalization)
  Sender: FDA-Public Use
  Company Number: JP-AMGEN-JPNCT2016157186

PATIENT
  Age: 64 Year
  Sex: Male
  Weight: 62 kg

DRUGS (68)
  1. ROMIPLOSTIM [Suspect]
     Active Substance: ROMIPLOSTIM
     Dosage: 250 MUG, UNK
     Route: 058
     Dates: start: 20121231, end: 20121231
  2. ROMIPLOSTIM [Suspect]
     Active Substance: ROMIPLOSTIM
     Dosage: 250 MUG, UNK
     Route: 058
     Dates: start: 20130315, end: 20130315
  3. PREDNISOLONE. [Suspect]
     Active Substance: PREDNISOLONE
     Dosage: 20 MG, UNK
     Route: 048
     Dates: start: 20121205, end: 20121218
  4. PREDNISOLONE. [Suspect]
     Active Substance: PREDNISOLONE
     Dosage: 5 MG, UNK
     Route: 048
     Dates: start: 20130528, end: 20130711
  5. ENDOXAN [Suspect]
     Active Substance: CYCLOPHOSPHAMIDE
     Indication: ADULT T-CELL LYMPHOMA/LEUKAEMIA
     Dosage: UNK
     Route: 065
  6. URDENACIN [Concomitant]
     Indication: CHOLELITHIASIS
     Dosage: 300 MG, UNK
     Route: 048
     Dates: start: 20121210
  7. MAGMITT [Concomitant]
     Active Substance: MAGNESIUM OXIDE
     Indication: CONSTIPATION
     Dosage: 1500 MG, UNK
     Route: 048
     Dates: start: 20130118, end: 20130221
  8. ROMIPLOSTIM [Suspect]
     Active Substance: ROMIPLOSTIM
     Dosage: 250 MUG, 2X/DAY/WEEK
     Route: 058
     Dates: start: 20130114, end: 20130128
  9. ROMIPLOSTIM [Suspect]
     Active Substance: ROMIPLOSTIM
     Dosage: 80 MUG, UNK
     Route: 058
     Dates: start: 20130315, end: 20130315
  10. ROMIPLOSTIM [Suspect]
     Active Substance: ROMIPLOSTIM
     Dosage: 1.98 MUG/KG, UNK
     Route: 058
     Dates: start: 20130628, end: 20130628
  11. GRANISETRON [Suspect]
     Active Substance: GRANISETRON
     Indication: ADULT T-CELL LYMPHOMA/LEUKAEMIA
     Dosage: UNK
     Route: 042
  12. ONCOVIN [Suspect]
     Active Substance: VINCRISTINE SULFATE
     Indication: ADULT T-CELL LYMPHOMA/LEUKAEMIA
     Dosage: UNK
     Route: 042
  13. ROMIPLOSTIM [Suspect]
     Active Substance: ROMIPLOSTIM
     Dosage: 250 MUG, UNK
     Route: 058
     Dates: start: 20130218, end: 20130218
  14. ROMIPLOSTIM [Suspect]
     Active Substance: ROMIPLOSTIM
     Dosage: 200 MUG, UNK
     Route: 058
     Dates: start: 20130423, end: 20130517
  15. ROMIPLOSTIM [Suspect]
     Active Substance: ROMIPLOSTIM
     Dosage: 2.96 MUG/KG, UNK
     Route: 058
     Dates: start: 20130726, end: 20130726
  16. GRAN [Suspect]
     Active Substance: FILGRASTIM
     Indication: ADULT T-CELL LYMPHOMA/LEUKAEMIA
     Dosage: UNK
     Route: 065
  17. PREDNISOLONE. [Suspect]
     Active Substance: PREDNISOLONE
     Dosage: 15 MG, UNK
     Route: 048
     Dates: start: 20121219, end: 20130101
  18. PREDNISOLONE. [Suspect]
     Active Substance: PREDNISOLONE
     Dosage: 12.5 MG, UNK
     Route: 048
     Dates: start: 20130102, end: 20130328
  19. PREDNISOLONE. [Suspect]
     Active Substance: PREDNISOLONE
     Dosage: 7.5 MG, UNK
     Route: 048
     Dates: start: 20130430, end: 20130527
  20. ADRIACIN [Suspect]
     Active Substance: DOXORUBICIN HYDROCHLORIDE
     Indication: ADULT T-CELL LYMPHOMA/LEUKAEMIA
     Dosage: UNK
     Route: 042
  21. FLUCONAZOLE. [Concomitant]
     Active Substance: FLUCONAZOLE
     Dosage: 100 MG, UNK
     Route: 048
     Dates: start: 20121201
  22. MAGMITT [Concomitant]
     Active Substance: MAGNESIUM OXIDE
     Dosage: 2000 MG, UNK
     Route: 048
     Dates: start: 20130222
  23. ITRIZOLE [Concomitant]
     Active Substance: ITRACONAZOLE
     Indication: PROPHYLAXIS
     Dosage: UNK
     Route: 048
  24. ROMIPLOSTIM [Suspect]
     Active Substance: ROMIPLOSTIM
     Indication: PRODUCT USED FOR UNKNOWN INDICATION
     Dosage: 60 MUG, UNK
     Route: 058
     Dates: start: 20121126, end: 20121126
  25. ROMIPLOSTIM [Suspect]
     Active Substance: ROMIPLOSTIM
     Dosage: 185 MUG, UNK
     Route: 058
     Dates: start: 20121210, end: 20121210
  26. ROMIPLOSTIM [Suspect]
     Active Substance: ROMIPLOSTIM
     Dosage: 200 MUG, UNK
     Route: 058
     Dates: start: 20130416, end: 20130416
  27. ROMIPLOSTIM [Suspect]
     Active Substance: ROMIPLOSTIM
     Dosage: 2 MUG/KG, UNK
     Route: 058
     Dates: start: 20130528, end: 20130528
  28. ROMIPLOSTIM [Suspect]
     Active Substance: ROMIPLOSTIM
     Dosage: 1.95 MUG/KG, UNK
     Route: 058
     Dates: start: 20130618, end: 20130618
  29. ROMIPLOSTIM [Suspect]
     Active Substance: ROMIPLOSTIM
     Dosage: 1.98 MUG/KG, UNK
     Route: 058
     Dates: start: 20130823, end: 20130823
  30. PREDNISOLONE. [Suspect]
     Active Substance: PREDNISOLONE
     Dosage: 10 MG, UNK
     Route: 048
     Dates: start: 20130329, end: 20130429
  31. TRANSAMIN [Concomitant]
     Active Substance: TRANEXAMIC ACID
     Indication: IMMUNE THROMBOCYTOPENIC PURPURA
     Dosage: 1500 MG, UNK
     Route: 048
     Dates: start: 20121120, end: 20130123
  32. ROMIPLOSTIM [Suspect]
     Active Substance: ROMIPLOSTIM
     Dosage: 75 MUG, UNK
     Route: 058
     Dates: start: 20130128, end: 20130128
  33. ROMIPLOSTIM [Suspect]
     Active Substance: ROMIPLOSTIM
     Dosage: 250 MUG, UNK
     Route: 058
     Dates: start: 20130205, end: 20130205
  34. ROMIPLOSTIM [Suspect]
     Active Substance: ROMIPLOSTIM
     Dosage: 15 MUG, QWK
     Route: 058
     Dates: start: 20130322, end: 20130329
  35. ROMIPLOSTIM [Suspect]
     Active Substance: ROMIPLOSTIM
     Dosage: 1.09 MUG/KG, UNK
     Route: 058
     Dates: start: 20130921, end: 20130921
  36. TAZIN [Concomitant]
     Active Substance: CARBAZOCHROME SODIUM SULFONATE
     Indication: IMMUNE THROMBOCYTOPENIC PURPURA
     Dosage: 90 MG, UNK
     Route: 048
     Dates: start: 20121120, end: 20130123
  37. FLUCONAZOLE. [Concomitant]
     Active Substance: FLUCONAZOLE
     Indication: ORAL CANDIDIASIS
     Dosage: 200 MG, UNK
     Route: 048
     Dates: start: 20121124, end: 20121130
  38. BAKTAR [Concomitant]
     Active Substance: SULFAMETHOXAZOLE\TRIMETHOPRIM
     Dosage: 500 MG, UNK
     Route: 048
     Dates: start: 20121211
  39. LAXOBERON [Concomitant]
     Active Substance: SODIUM PICOSULFATE
     Indication: CONSTIPATION
     Dosage: UNK
     Route: 048
  40. ROMIPLOSTIM [Suspect]
     Active Substance: ROMIPLOSTIM
     Dosage: 60 MUG, UNK
     Route: 058
     Dates: start: 20121224, end: 20121224
  41. ROMIPLOSTIM [Suspect]
     Active Substance: ROMIPLOSTIM
     Dosage: 90 MUG, UNK
     Route: 058
     Dates: start: 20130107, end: 20130107
  42. ROMIPLOSTIM [Suspect]
     Active Substance: ROMIPLOSTIM
     Dosage: 70 MUG, UNK
     Route: 058
     Dates: start: 20130218, end: 20130218
  43. ROMIPLOSTIM [Suspect]
     Active Substance: ROMIPLOSTIM
     Dosage: 250 MUG, QWK
     Route: 058
     Dates: start: 20130322, end: 20130329
  44. ROMIPLOSTIM [Suspect]
     Active Substance: ROMIPLOSTIM
     Dosage: 1.98 MUG/KG, UNK
     Route: 058
     Dates: start: 20130607, end: 20130607
  45. PREDNISOLONE. [Suspect]
     Active Substance: PREDNISOLONE
     Indication: IMMUNE THROMBOCYTOPENIC PURPURA
     Dosage: 50 MG, UNK
     Route: 048
     Dates: start: 20121112, end: 20121127
  46. LASTET S [Suspect]
     Active Substance: ETOPOSIDE
     Indication: ADULT T-CELL LYMPHOMA/LEUKAEMIA
     Dosage: UNK
     Route: 048
  47. LANSOPRAZOLE. [Concomitant]
     Active Substance: LANSOPRAZOLE
     Indication: PROPHYLAXIS
     Dosage: 15 MG, UNK
     Route: 048
     Dates: start: 20121112
  48. BAKTAR [Concomitant]
     Active Substance: SULFAMETHOXAZOLE\TRIMETHOPRIM
     Indication: PROPHYLAXIS
     Dosage: 1000 MG, UNK
     Route: 048
     Dates: start: 20121205, end: 20121210
  49. UNASYN S [Concomitant]
     Active Substance: AMPICILLIN SODIUM\SULBACTAM SODIUM
     Indication: PNEUMONIA
     Dosage: 9000 MG, UNK
     Route: 042
     Dates: start: 20130205, end: 20130218
  50. ROMIPLOSTIM [Suspect]
     Active Substance: ROMIPLOSTIM
     Dosage: 120 MUG, UNK
     Route: 058
     Dates: start: 20121203, end: 20121203
  51. ROMIPLOSTIM [Suspect]
     Active Substance: ROMIPLOSTIM
     Dosage: 250 MUG, QWK
     Route: 058
     Dates: start: 20121217, end: 20121224
  52. ROMIPLOSTIM [Suspect]
     Active Substance: ROMIPLOSTIM
     Dosage: 120 MUG, UNK
     Route: 058
     Dates: start: 20121231, end: 20121231
  53. ROMIPLOSTIM [Suspect]
     Active Substance: ROMIPLOSTIM
     Dosage: 250 MUG, UNK
     Route: 058
     Dates: start: 20130301, end: 20130301
  54. ROMIPLOSTIM [Suspect]
     Active Substance: ROMIPLOSTIM
     Dosage: 140 MUG, UNK
     Route: 058
     Dates: start: 20130301, end: 20130301
  55. ROMIPLOSTIM [Suspect]
     Active Substance: ROMIPLOSTIM
     Dosage: 200 MUG, UNK
     Route: 058
     Dates: start: 20130405, end: 20130405
  56. ROMIPLOSTIM [Suspect]
     Active Substance: ROMIPLOSTIM
     Dosage: 2.94 MUG/KG, UNK
     Route: 058
     Dates: start: 20130809, end: 20130809
  57. ROMIPLOSTIM [Suspect]
     Active Substance: ROMIPLOSTIM
     Dosage: 1.02 MUG/KG, UNK
     Route: 058
     Dates: start: 20130830, end: 20130830
  58. PREDNISOLONE. [Suspect]
     Active Substance: PREDNISOLONE
     Dosage: 10 MG, UNK
     Route: 048
     Dates: start: 20130917, end: 20130924
  59. PREDNISOLONE. [Suspect]
     Active Substance: PREDNISOLONE
     Dosage: 5 MG, UNK
     Route: 048
     Dates: start: 20130925
  60. FERROMIA [Concomitant]
     Active Substance: FERROUS CITRATE
     Indication: IMMUNE THROMBOCYTOPENIC PURPURA
     Dosage: 50 MG, UNK
     Route: 048
     Dates: start: 20130114, end: 20130625
  61. ACICLOVIR [Concomitant]
     Active Substance: ACYCLOVIR
     Indication: PROPHYLAXIS
     Dosage: UNK
     Route: 048
  62. PURSENNID [Concomitant]
     Active Substance: SENNOSIDES A AND B
     Indication: CONSTIPATION
     Dosage: UNK
     Route: 048
  63. ROMIPLOSTIM [Suspect]
     Active Substance: ROMIPLOSTIM
     Dosage: 250 MUG, UNK
     Route: 058
     Dates: start: 20130107, end: 20130107
  64. ROMIPLOSTIM [Suspect]
     Active Substance: ROMIPLOSTIM
     Dosage: 135 MUG, UNK
     Route: 058
     Dates: start: 20130205, end: 20130205
  65. ROMIPLOSTIM [Suspect]
     Active Substance: ROMIPLOSTIM
     Dosage: 2.01 MUG/KG, UNK
     Route: 058
     Dates: start: 20130712, end: 20130712
  66. PREDNISOLONE. [Suspect]
     Active Substance: PREDNISOLONE
     Dosage: 30 MG, UNK
     Route: 048
     Dates: start: 20121128, end: 20121204
  67. PREDNISOLONE. [Suspect]
     Active Substance: PREDNISOLONE
     Dosage: 2.5 MG, UNK
     Route: 048
     Dates: start: 20130712, end: 20130916
  68. CLARITHROMYCIN. [Concomitant]
     Active Substance: CLARITHROMYCIN
     Indication: PNEUMONIA
     Dosage: 400 MG, UNK
     Route: 048
     Dates: start: 20130205, end: 20130218

REACTIONS (6)
  - White blood cell count increased [Recovered/Resolved]
  - Pneumonia [Recovered/Resolved]
  - Adult T-cell lymphoma/leukaemia [Recovered/Resolved]
  - Neutrophil count increased [Recovered/Resolved]
  - Adult T-cell lymphoma/leukaemia [Recovered/Resolved]
  - White blood cell count decreased [Recovered/Resolved]

NARRATIVE: CASE EVENT DATE: 20130205
